FAERS Safety Report 22534263 (Version 2)
Quarter: 2023Q2

REPORT INFORMATION
  Report Type: Spontaneous
  Country: CA (occurrence: CA)
  Receive Date: 20230608
  Receipt Date: 20230614
  Transmission Date: 20230722
  Serious: Yes (Other)
  Sender: FDA-Public Use
  Company Number: US-AMGEN-USASP2023097360

PATIENT
  Age: 69 Year
  Sex: Male

DRUGS (3)
  1. PROLIA [Suspect]
     Active Substance: DENOSUMAB
     Indication: Osteoporosis postmenopausal
     Dosage: UNK
     Route: 065
     Dates: start: 2016
  2. ROSUVASTATIN [Concomitant]
     Active Substance: ROSUVASTATIN
  3. CANDESARTAN [Concomitant]
     Active Substance: CANDESARTAN
     Dosage: 8 MILLIGRAM

REACTIONS (2)
  - Foot fracture [Unknown]
  - COVID-19 [Unknown]

NARRATIVE: CASE EVENT DATE: 20210101
